FAERS Safety Report 11566723 (Version 3)
Quarter: 2015Q4

REPORT INFORMATION
  Report Type: Spontaneous
  Country: NO (occurrence: NO)
  Receive Date: 20150929
  Receipt Date: 20151029
  Transmission Date: 20160304
  Serious: Yes (Death, Other)
  Sender: FDA-Public Use
  Company Number: NO-ROCHE-1638901

PATIENT
  Age: 68 Year
  Sex: Male

DRUGS (14)
  1. LACTULOSE. [Concomitant]
     Active Substance: LACTULOSE
     Route: 048
  2. NEURONTIN (NORWAY) [Concomitant]
     Route: 048
  3. ZANIDIP [Concomitant]
     Active Substance: LERCANIDIPINE HYDROCHLORIDE
     Route: 048
  4. NOVORAPID [Concomitant]
     Active Substance: INSULIN ASPART
     Dosage: AS NEEDED
     Route: 058
  5. ALBYL-E [Concomitant]
     Active Substance: ASPIRIN\MAGNESIUM OXIDE
     Route: 048
  6. TRIOBE [Concomitant]
     Route: 048
  7. NOVOMIX 30 FLEXPEN [Concomitant]
     Active Substance: INSULIN ASPART
     Dosage: 50 UNITS MORNING, 36 UNITS EVENING
     Route: 058
  8. METOPROLOL TARTRATE. [Concomitant]
     Active Substance: METOPROLOL TARTRATE
     Route: 048
  9. ROACTEMRA [Suspect]
     Active Substance: TOCILIZUMAB
     Indication: POLYMYALGIA RHEUMATICA
     Route: 041
     Dates: start: 20150325, end: 20150811
  10. IMOVANE [Concomitant]
     Active Substance: ZOPICLONE
     Route: 048
  11. LOVASTATIN. [Concomitant]
     Active Substance: LOVASTATIN
     Route: 048
     Dates: end: 20150912
  12. CALCIGRAN FORTE [Concomitant]
     Route: 065
  13. PREDNISOLON [Concomitant]
     Active Substance: PREDNISOLONE
     Indication: POLYMYALGIA RHEUMATICA
     Dosage: VARYING DOSING OVER TIME, PERIODICALLY HIGHDOSE, ACCORDING TO PROGRESSION OF UNDERLYING DISEASE.
     Route: 048
  14. SOMAC [Concomitant]
     Active Substance: PANTOPRAZOLE SODIUM
     Route: 048

REACTIONS (6)
  - Myocardial infarction [Unknown]
  - Interstitial lung disease [Fatal]
  - Tachypnoea [Fatal]
  - Dyspnoea [Fatal]
  - Pulmonary fibrosis [Unknown]
  - Off label use [Unknown]

NARRATIVE: CASE EVENT DATE: 20150822
